FAERS Safety Report 12844166 (Version 1)
Quarter: 2016Q4

REPORT INFORMATION
  Report Type: Spontaneous
  Country: US (occurrence: US)
  Receive Date: 20161013
  Receipt Date: 20161013
  Transmission Date: 20170207
  Serious: No
  Sender: FDA-Public Use
  Company Number: US-ROCHE-1658703

PATIENT
  Age: 53 Year
  Sex: Female

DRUGS (8)
  1. ZELBORAF [Suspect]
     Active Substance: VEMURAFENIB
     Indication: SKIN CANCER
     Route: 048
     Dates: start: 20130623, end: 201510
  2. PREDNISONE. [Concomitant]
     Active Substance: PREDNISONE
  3. CEPHALEXIN. [Concomitant]
     Active Substance: CEPHALEXIN
  4. DULOXETINE. [Concomitant]
     Active Substance: DULOXETINE
  5. DIPHENHYDRAMINE. [Concomitant]
     Active Substance: DIPHENHYDRAMINE
  6. WARFARIN [Concomitant]
     Active Substance: WARFARIN
  7. HYDROCODONE BITARTRATE AND ACETAMINOPHEN [Concomitant]
     Active Substance: ACETAMINOPHEN\HYDROCODONE BITARTRATE
  8. LEVOFLOXACIN. [Concomitant]
     Active Substance: LEVOFLOXACIN

REACTIONS (2)
  - Drug ineffective [Unknown]
  - Disease progression [Not Recovered/Not Resolved]

NARRATIVE: CASE EVENT DATE: 20151106
